FAERS Safety Report 15133926 (Version 1)
Quarter: 2018Q3

REPORT INFORMATION
  Report Type: Spontaneous
  Country: US (occurrence: US)
  Receive Date: 20180712
  Receipt Date: 20180712
  Transmission Date: 20181010
  Serious: Yes (Other)
  Sender: FDA-Public Use
  Company Number: US-BAYER-2018-128732

PATIENT
  Sex: Female

DRUGS (1)
  1. MIRENA [Suspect]
     Active Substance: LEVONORGESTREL
     Dosage: 20 MCG/24HR, CONT
     Route: 015
     Dates: start: 20180703

REACTIONS (4)
  - Dizziness [None]
  - Abdominal distension [None]
  - Genital haemorrhage [Not Recovered/Not Resolved]
  - Increased appetite [None]

NARRATIVE: CASE EVENT DATE: 201807
